FAERS Safety Report 11848541 (Version 2)
Quarter: 2015Q4

REPORT INFORMATION
  Report Type: Spontaneous
  Country: CA (occurrence: CA)
  Receive Date: 20151218
  Receipt Date: 20151228
  Transmission Date: 20160305
  Serious: Yes (Hospitalization)
  Sender: FDA-Public Use
  Company Number: CA-009507513-1512CAN006728

PATIENT
  Age: 78 Year
  Sex: Female

DRUGS (15)
  1. ADVAIR HFA [Concomitant]
     Active Substance: FLUTICASONE PROPIONATE\SALMETEROL XINAFOATE
  2. FUROSEMIDE. [Concomitant]
     Active Substance: FUROSEMIDE
     Dosage: UNK
  3. SENOKOT [Concomitant]
     Active Substance: SENNOSIDES
     Dosage: UNK
  4. REMERON [Suspect]
     Active Substance: MIRTAZAPINE
     Indication: INSOMNIA
     Dosage: 3.75 MG, ONE EVERY ONE DAY
     Route: 048
  5. REMERON [Interacting]
     Active Substance: MIRTAZAPINE
     Indication: ANXIETY
  6. LAX A DAY [Concomitant]
     Dosage: UNK
  7. VENTOLIN [Concomitant]
     Active Substance: ALBUTEROL SULFATE
     Dosage: UNK
  8. ACETAMINOPHEN. [Concomitant]
     Active Substance: ACETAMINOPHEN
  9. PREDNISONE. [Concomitant]
     Active Substance: PREDNISONE
     Dosage: UNK
  10. BENADRYL [Concomitant]
     Active Substance: DIPHENHYDRAMINE HYDROCHLORIDE
  11. BETAMETHASONE. [Concomitant]
     Active Substance: BETAMETHASONE
  12. VITAMIN D [Concomitant]
     Active Substance: CHOLECALCIFEROL
     Dosage: UNK
  13. DURAGESIC [Interacting]
     Active Substance: FENTANYL
     Indication: PAIN
     Dosage: 50 MG, ONE EVERY 72 HOURS
     Route: 061
  14. PANTOPRAZOLE [Concomitant]
     Active Substance: PANTOPRAZOLE SODIUM
     Dosage: UNK
  15. ZOPICLONE [Concomitant]
     Active Substance: ZOPICLONE
     Dosage: UNK

REACTIONS (3)
  - Drug interaction [Unknown]
  - Hyperhidrosis [Unknown]
  - Serotonin syndrome [Unknown]
